FAERS Safety Report 6803089-5 (Version None)
Quarter: 2010Q2

REPORT INFORMATION
  Report Type: 
  Country: None (occurrence: None)
  Receive Date: 20100628
  Receipt Date: 20100622
  Transmission Date: 20101027
  Serious: Yes (Hospitalization)
  Sender: FDA-Public Use
  Company Number: ZA-SANOFI-AVENTIS-2009SA001806

PATIENT
  Sex: Female
  Weight: 4.2 kg

DRUGS (4)
  1. LANTUS [Suspect]
     Route: 064
     Dates: start: 20090427
  2. SOLOSTAR [Suspect]
     Dates: start: 20090427
  3. APIDRA SOLOSTAR [Suspect]
     Route: 064
     Dates: start: 20090427
  4. SOLOSTAR [Suspect]
     Dates: start: 20090427

REACTIONS (3)
  - BLOOD GLUCOSE FLUCTUATION [None]
  - DRUG EXPOSURE DURING PREGNANCY [None]
  - PREMATURE BABY [None]
